FAERS Safety Report 25682100 (Version 1)
Quarter: 2025Q3

REPORT INFORMATION
  Report Type: Spontaneous
  Country: US (occurrence: None)
  Receive Date: 20250813
  Receipt Date: 20250813
  Transmission Date: 20251021
  Serious: Yes (Other)
  Sender: FDA-CTU
  Company Number: None

PATIENT
  Age: 59 Year
  Sex: Female

DRUGS (3)
  1. BCG LIVE [Suspect]
     Active Substance: BCG LIVE
     Indication: Bladder cancer
  2. KEYTRUDA [Suspect]
     Active Substance: PEMBROLIZUMAB
  3. ADSTILADRIN [Suspect]
     Active Substance: NADOFARAGENE FIRADENOVEC-VNCG

REACTIONS (11)
  - Erythema [None]
  - Decreased appetite [None]
  - Weight decreased [None]
  - Pollakiuria [None]
  - Disease recurrence [None]
  - Drug intolerance [None]
  - Influenza like illness [None]
  - Abdominal pain lower [None]
  - Dysuria [None]
  - Incorrect dose administered [None]
  - Tremor [None]

NARRATIVE: CASE EVENT DATE: 20240123
